FAERS Safety Report 4647374-4 (Version None)
Quarter: 2005Q2

REPORT INFORMATION
  Report Type: 
  Country: None (occurrence: None)
  Receive Date: 20050426
  Receipt Date: 20050414
  Transmission Date: 20051028
  Serious: No
  Sender: FDA-Public Use
  Company Number: 2005AP02094

PATIENT
  Age: 73 Year
  Sex: Male

DRUGS (4)
  1. BUDESONIDE + FORMOTEROL (SYMBICORT) [Suspect]
     Indication: LOWER RESPIRATORY TRACT INFECTION
     Dosage: 2 PUFF BID IH
     Route: 055
     Dates: start: 20040801, end: 20050307
  2. BUDESONIDE + FORMOTEROL (SYMBICORT) [Suspect]
     Indication: LOWER RESPIRATORY TRACT INFECTION
     Dosage: 2 PUFF TID IH
     Route: 055
     Dates: start: 20050307, end: 20050405
  3. BUDESONIDE + FORMOTEROL (SYMBICORT) [Suspect]
     Indication: LOWER RESPIRATORY TRACT INFECTION
     Dosage: 2 PUFF TID IH
     Route: 055
     Dates: start: 20050405
  4. IMMUNOGLOBULIN HUMAN ^MERIEUX^ [Concomitant]

REACTIONS (1)
  - ATRIAL FIBRILLATION [None]
